FAERS Safety Report 4613603-6 (Version None)
Quarter: 2005Q1

REPORT INFORMATION
  Report Type: 
  Country: None (occurrence: None)
  Receive Date: 20050321
  Receipt Date: 20030115
  Transmission Date: 20050727
  Serious: Yes (Other)
  Sender: FDA-Public Use
  Company Number: US-AMGEN-US024120

PATIENT
  Sex: Female
  Weight: 80.8 kg

DRUGS (4)
  1. EPOGEN [Suspect]
     Indication: DIALYSIS
     Route: 058
     Dates: start: 19980801, end: 20021125
  2. SODIUM BICARBONATE [Concomitant]
  3. FERROUS SULFATE TAB [Concomitant]
  4. RENAGEL [Concomitant]
     Route: 048

REACTIONS (4)
  - ANTI-ERYTHROPOIETIN ANTIBODY POSITIVE [None]
  - HAEMOLYSIS [None]
  - SICKLE CELL ANAEMIA WITH CRISIS [None]
  - THERAPEUTIC RESPONSE DECREASED [None]
